FAERS Safety Report 10231552 (Version 1)
Quarter: 2014Q2

REPORT INFORMATION
  Report Type: Spontaneous
  Country: TW (occurrence: TW)
  Receive Date: 20140611
  Receipt Date: 20140611
  Transmission Date: 20141212
  Serious: Yes (Other)
  Sender: FDA-Public Use
  Company Number: TW-BAXTER-2014BAX029144

PATIENT
  Age: 4 Year
  Sex: Female

DRUGS (2)
  1. BAXTER KIOVIG 100MG/ML SOLUTION FOR INFUSION [Suspect]
     Indication: IMMUNE THROMBOCYTOPENIC PURPURA
     Route: 042
  2. METHYLPREDNISOLONE [Suspect]
     Indication: IMMUNE THROMBOCYTOPENIC PURPURA
     Route: 048

REACTIONS (1)
  - No therapeutic response [Not Recovered/Not Resolved]
